FAERS Safety Report 15172708 (Version 1)
Quarter: 2018Q3

REPORT INFORMATION
  Report Type: Spontaneous
  Country: JP (occurrence: JP)
  Receive Date: 20180720
  Receipt Date: 20180720
  Transmission Date: 20181010
  Serious: Yes (Death)
  Sender: FDA-Public Use
  Company Number: JP-MYLANLABS-2018M1054476

PATIENT
  Age: 69 Year
  Sex: Female

DRUGS (1)
  1. AZATHIOPRINE. [Suspect]
     Active Substance: AZATHIOPRINE
     Indication: POLYMYOSITIS
     Dosage: TOTAL ESTIMATED CUMULATIVE DOSAGE WAS 297G
     Route: 065

REACTIONS (1)
  - Erythroleukaemia [Fatal]
